FAERS Safety Report 7874238 (Version 2)
Quarter: 2012Q4

REPORT INFORMATION
  Report Type: 
  Country: US (occurrence: US)
  Receive Date: 20110328
  Receipt Date: 20120910
  Transmission Date: 20130627
  Serious: No
  Sender: FDA-Public Use
  Company Number: US-ASTRAZENECA-2011SE15662

PATIENT
  Age: 61 Year
  Sex: Female

DRUGS (9)
  1. NEXIUM [Suspect]
     Route: 048
  2. LISINOPRIL [Suspect]
     Route: 048
  3. TOPROL [Suspect]
     Route: 048
  4. LEVOTHYROID [Concomitant]
  5. NIASPAN [Concomitant]
  6. ZOCOR [Concomitant]
  7. ASPIRIN [Concomitant]
  8. IBUPROFEN [Concomitant]
  9. PROAIR [Concomitant]

REACTIONS (2)
  - Pain [Unknown]
  - Drug dose omission [Unknown]
